FAERS Safety Report 17812569 (Version 1)
Quarter: 2020Q2

REPORT INFORMATION
  Report Type: Report from Study
  Country: KR (occurrence: KR)
  Receive Date: 20200521
  Receipt Date: 20200521
  Transmission Date: 20200714
  Serious: Yes (Death, Other)
  Sender: FDA-Public Use
  Company Number: KR-GLAXOSMITHKLINE-B0977618A

PATIENT
  Age: 72 Year
  Sex: Female

DRUGS (14)
  1. VESICARE [Concomitant]
     Active Substance: SOLIFENACIN SUCCINATE
     Indication: STRESS URINARY INCONTINENCE
     Dosage: 5 MG, QD
     Route: 048
     Dates: start: 20131017
  2. AMLOSTAR [Concomitant]
     Indication: HYPERTENSION
     Dosage: 5 MG, QD
     Route: 048
     Dates: start: 20130715
  3. LACTOBY [Concomitant]
     Indication: CONSTIPATION
     Dosage: 1 CAPSULE DAILY
     Route: 048
     Dates: start: 20131017
  4. WARFARIN SODIUM. [Concomitant]
     Active Substance: WARFARIN SODIUM
     Indication: PULMONARY EMBOLISM
     Dosage: 2.5 MG, QD
     Route: 048
     Dates: start: 20120820
  5. BLINDED ATORVASTATIN CALCIUM [Suspect]
     Active Substance: ATORVASTATIN CALCIUM
     Indication: DYSLIPIDAEMIA
     Dosage: 4000 MG, QD
     Route: 048
     Dates: start: 20140110
  6. CONCOR [Concomitant]
     Active Substance: BISOPROLOL FUMARATE
     Indication: CONGESTIVE CARDIOMYOPATHY
     Dosage: 1.25 MG, QD
     Route: 048
     Dates: start: 20130729
  7. ATORVASTATIN [Suspect]
     Active Substance: ATORVASTATIN
     Indication: DYSLIPIDAEMIA
     Dosage: 20 MG, QD
     Route: 048
     Dates: start: 20140110
  8. WARFARIN SODIUM. [Concomitant]
     Active Substance: WARFARIN SODIUM
     Dosage: 4.5 MG, QD
     Route: 048
     Dates: start: 20121023
  9. STILENE [Concomitant]
     Indication: GASTROINTESTINAL DISORDER
     Dosage: 60 MG, BID
     Route: 048
     Dates: start: 20131010
  10. CELEBREX [Concomitant]
     Active Substance: CELECOXIB
     Indication: ARTHRITIS
     Dosage: 200 MG, QD
     Route: 048
     Dates: start: 20120820
  11. BUSPAR [Concomitant]
     Active Substance: BUSPIRONE HYDROCHLORIDE
     Indication: ANXIETY DISORDER
     Dosage: 15 MG, QD
     Route: 048
     Dates: start: 20131010
  12. MULEX [Concomitant]
     Indication: BACK PAIN
     Dosage: 50 MG, BID
     Route: 048
     Dates: start: 20131010
  13. OMEGA-3-ACID ETHYL ESTERS. [Suspect]
     Active Substance: OMEGA-3-ACID ETHYL ESTERS
     Indication: DYSLIPIDAEMIA
     Dosage: 4000 MG, QD
     Route: 048
     Dates: start: 20140110
  14. GLUCOPHAGE [Concomitant]
     Active Substance: METFORMIN HYDROCHLORIDE
     Indication: DIABETES MELLITUS
     Dosage: 500 MG, BID
     Route: 048
     Dates: start: 20120327

REACTIONS (1)
  - Sudden death [Fatal]

NARRATIVE: CASE EVENT DATE: 20140302
